FAERS Safety Report 6229950-0 (Version None)
Quarter: 2009Q2

REPORT INFORMATION
  Report Type: 
  Country: None (occurrence: None)
  Receive Date: 20090615
  Receipt Date: 20090608
  Transmission Date: 20091009
  Serious: Yes (Hospitalization, Other)
  Sender: FDA-Public Use
  Company Number: NO-B.I. PHARMACEUTICALS,INC./RIDGEFIELD-2009-SW-00141NO

PATIENT
  Sex: Female

DRUGS (6)
  1. ASPIRIN AND DIPYRIDAMOLE [Suspect]
     Indication: PROPHYLAXIS
     Dosage: 200MG/25MG ONCE DAILY
     Route: 048
     Dates: start: 20090508, end: 20090513
  2. CIPRAMIL [Suspect]
     Indication: DEPRESSION
     Dosage: 10MG
     Route: 048
     Dates: start: 20090512, end: 20090516
  3. SIMVASTATIN [Suspect]
     Indication: HYPERCHOLESTEROLAEMIA
     Dosage: 40MG
     Route: 048
     Dates: start: 20090508, end: 20090513
  4. CENTYL WITH POTASSIUM CHORIDE [Suspect]
     Indication: HYPERTENSION
     Dosage: 2.5MG
     Route: 048
     Dates: start: 20090514, end: 20090515
  5. ALBYL-E [Concomitant]
     Indication: PROPHYLAXIS
     Dosage: 75MG
     Route: 048
     Dates: start: 20090508
  6. ENALAPRIL [Concomitant]

REACTIONS (6)
  - ARTERIAL STENOSIS [None]
  - CEREBRAL INFARCTION [None]
  - DEPRESSION [None]
  - HYPONATRAEMIA [None]
  - NAUSEA [None]
  - VOMITING [None]
